FAERS Safety Report 7729776-2 (Version None)
Quarter: 2011Q3

REPORT INFORMATION
  Report Type: 
  Country: None (occurrence: None)
  Receive Date: 20110906
  Receipt Date: 20110829
  Transmission Date: 20111222
  Serious: Yes (Life-Threatening, Hospitalization)
  Sender: FDA-Public Use
  Company Number: CA-ROCHE-780815

PATIENT
  Sex: Female
  Weight: 72 kg

DRUGS (10)
  1. METHOTREXATE [Concomitant]
  2. PREDNISONE [Concomitant]
  3. CALCIUM CARBONATE [Concomitant]
  4. ADVIL LIQUI-GELS [Concomitant]
  5. TYLENOL-500 [Concomitant]
  6. VITAMIN D [Concomitant]
  7. LAMOTRIGINE [Concomitant]
  8. TOCILIZUMAB [Suspect]
     Indication: RHEUMATOID ARTHRITIS
     Route: 042
     Dates: start: 20101215, end: 20110309
  9. FOLIC ACID [Concomitant]
  10. ACTONEL [Concomitant]

REACTIONS (5)
  - CHOLECYSTECTOMY [None]
  - BILIARY TRACT OPERATION [None]
  - HEPATECTOMY [None]
  - HEPATIC NEOPLASM MALIGNANT [None]
  - BILE OUTPUT INCREASED [None]
